FAERS Safety Report 11807776 (Version 5)
Quarter: 2016Q1

REPORT INFORMATION
  Report Type: Spontaneous
  Country: US (occurrence: US)
  Receive Date: 20151207
  Receipt Date: 20160211
  Transmission Date: 20160525
  Serious: Yes (Life-Threatening)
  Sender: FDA-Public Use
  Company Number: US-BAYER-2015-483400

PATIENT
  Age: 68 Year
  Sex: Female
  Weight: 90.9 kg

DRUGS (5)
  1. PHENOBARB [Concomitant]
     Active Substance: PHENOBARBITAL SODIUM
  2. ALEVE PM [Suspect]
     Active Substance: DIPHENHYDRAMINE HYDROCHLORIDE\NAPROXEN SODIUM
     Indication: PAIN
     Dosage: 1 DF, ONCE
     Route: 048
     Dates: start: 20151203, end: 20151203
  3. ENALAPRIL [Concomitant]
     Active Substance: ENALAPRIL
  4. NORVASC [Concomitant]
     Active Substance: AMLODIPINE BESYLATE
  5. PRILOSEC [Concomitant]
     Active Substance: OMEPRAZOLE MAGNESIUM

REACTIONS (17)
  - Dyspnoea [None]
  - Mental status changes [Recovered/Resolved]
  - Screaming [Recovered/Resolved]
  - Pain [None]
  - Emotional distress [None]
  - Formication [None]
  - Stress [None]
  - General physical health deterioration [None]
  - Anaphylactic reaction [None]
  - Abnormal behaviour [Recovered/Resolved]
  - Urticaria [None]
  - Aphonia [None]
  - Fall [Recovered/Resolved]
  - Throat tightness [None]
  - Peripheral swelling [None]
  - Pruritus [None]
  - Anxiety [None]

NARRATIVE: CASE EVENT DATE: 20151203
